FAERS Safety Report 8546793-3 (Version None)
Quarter: 2012Q3

REPORT INFORMATION
  Report Type: 
  Country: None (occurrence: None)
  Receive Date: 20120727
  Receipt Date: 20120209
  Transmission Date: 20120928
  Serious: No
  Sender: FDA-Public Use
  Company Number: US-ASTRAZENECA-2012SE08876

PATIENT
  Age: 40 Year
  Sex: Male

DRUGS (4)
  1. SEROQUEL XR [Suspect]
     Route: 048
  2. ATELOL [Concomitant]
  3. SEROQUEL XR [Suspect]
     Indication: BIPOLAR DISORDER
     Route: 048
  4. LAMICTAL [Concomitant]

REACTIONS (2)
  - NERVOUS SYSTEM DISORDER [None]
  - INSOMNIA [None]
